FAERS Safety Report 16918811 (Version 1)
Quarter: 2019Q4

REPORT INFORMATION
  Report Type: Spontaneous
  Country: CA (occurrence: CA)
  Receive Date: 20191015
  Receipt Date: 20191015
  Transmission Date: 20200122
  Serious: Yes (Life-Threatening)
  Sender: FDA-Public Use
  Company Number: CA-PFIZER INC-2019445561

PATIENT
  Age: 71 Year
  Sex: Female
  Weight: 114 kg

DRUGS (2)
  1. ENALAPRIL [Concomitant]
     Active Substance: ENALAPRIL
     Dosage: UNK
  2. ATORVASTATIN CALCIUM. [Suspect]
     Active Substance: ATORVASTATIN CALCIUM
     Dosage: 40 MG, 1X/DAY
     Route: 048

REACTIONS (7)
  - Rhabdomyolysis [Unknown]
  - Acute kidney injury [Unknown]
  - Pain in extremity [Unknown]
  - Respiratory disorder [Unknown]
  - Hepatic failure [Unknown]
  - Asthenia [Unknown]
  - Hepatic enzyme abnormal [Unknown]
